FAERS Safety Report 8985170 (Version 1)
Quarter: 2012Q4

REPORT INFORMATION
  Report Type: 
  Country: US (occurrence: US)
  Receive Date: 20121226
  Receipt Date: 20121226
  Transmission Date: 20130627
  Serious: No
  Sender: FDA-Public Use
  Company Number: US-PFIZER INC-2012326541

PATIENT
  Age: 20 Year
  Sex: Female
  Weight: 58.1 kg

DRUGS (3)
  1. NEURONTIN [Suspect]
     Indication: NERVE PAIN
     Dosage: 300 mg, 4x/day
     Dates: start: 201203
  2. TRAMADOL [Concomitant]
     Indication: PAIN
     Dosage: UNK
  3. TRAZODONE [Concomitant]
     Indication: SLEEP PROBLEM
     Dosage: UNK

REACTIONS (1)
  - Alopecia [Not Recovered/Not Resolved]
